FAERS Safety Report 16932215 (Version 1)
Quarter: 2019Q4

REPORT INFORMATION
  Report Type: Spontaneous
  Country: DZ (occurrence: DZ)
  Receive Date: 20191017
  Receipt Date: 20191017
  Transmission Date: 20200122
  Serious: Yes (Death, Other)
  Sender: FDA-Public Use
  Company Number: DZ-BIOMARINAP-DZ-2019-126321

PATIENT

DRUGS (1)
  1. ALDURAZYME [Suspect]
     Active Substance: LARONIDASE
     Indication: GLYCOGEN STORAGE DISEASE TYPE II
     Dosage: UNK, QW
     Route: 042
     Dates: start: 20110421

REACTIONS (6)
  - Cardiogenic shock [Fatal]
  - Joint stiffness [Unknown]
  - Respiratory tract infection [Fatal]
  - Hernia [Unknown]
  - Bronchiolitis [Fatal]
  - Mitral valve disease [Fatal]

NARRATIVE: CASE EVENT DATE: 2019
